FAERS Safety Report 11130164 (Version 5)
Quarter: 2015Q4

REPORT INFORMATION
  Report Type: Report from Study
  Country: US (occurrence: US)
  Receive Date: 20150521
  Receipt Date: 20151223
  Transmission Date: 20160304
  Serious: No
  Sender: FDA-Public Use
  Company Number: US-AMGEN-USASL2015048438

PATIENT
  Age: 56 Year
  Sex: Female

DRUGS (1)
  1. ENBREL [Suspect]
     Active Substance: ETANERCEPT
     Indication: PSORIASIS
     Dosage: 50 MG, UNK
     Route: 065
     Dates: start: 20140319

REACTIONS (14)
  - Alopecia [Recovering/Resolving]
  - Stress [Unknown]
  - Injection site erythema [Unknown]
  - Emotional disorder [Unknown]
  - Pyrexia [Unknown]
  - Injection site swelling [Unknown]
  - Psoriasis [Recovering/Resolving]
  - Social avoidant behaviour [Unknown]
  - Physical disability [Not Recovered/Not Resolved]
  - Emotional distress [Unknown]
  - Nail disorder [Recovered/Resolved]
  - Nasopharyngitis [Unknown]
  - Malaise [Unknown]
  - Injection site warmth [Unknown]

NARRATIVE: CASE EVENT DATE: 2015
